FAERS Safety Report 21304260 (Version 1)
Quarter: 2022Q3

REPORT INFORMATION
  Report Type: Spontaneous
  Country: PT (occurrence: PT)
  Receive Date: 20220907
  Receipt Date: 20220907
  Transmission Date: 20221027
  Serious: Yes (Disabling)
  Sender: FDA-Public Use
  Company Number: None

PATIENT
  Age: 46 Year
  Sex: Female
  Weight: 65 kg

DRUGS (2)
  1. LYRICA [Interacting]
     Active Substance: PREGABALIN
     Indication: Pain
     Dosage: 50 MG, 1X/DAY AT NIGHT
     Route: 048
     Dates: start: 20220718, end: 20220721
  2. FLUOXETINE HYDROCHLORIDE [Interacting]
     Active Substance: FLUOXETINE HYDROCHLORIDE
     Indication: Depression
     Dosage: 20 MG, 1X/DAY (DURING LUNCH)
     Route: 048
     Dates: start: 20220718, end: 20220721

REACTIONS (3)
  - Dizziness [Recovered/Resolved]
  - Nausea [Recovered/Resolved]
  - Drug interaction [Unknown]

NARRATIVE: CASE EVENT DATE: 20220720
